FAERS Safety Report 4876321-5 (Version None)
Quarter: 2006Q1

REPORT INFORMATION
  Report Type: 
  Country: None (occurrence: None)
  Receive Date: 20060110
  Receipt Date: 20060102
  Transmission Date: 20060701
  Serious: Yes (Congenital Anomaly)
  Sender: FDA-Public Use
  Company Number: PHBS2006SE00443

PATIENT

DRUGS (1)
  1. LAMISIL [Suspect]
     Dosage: FOETAL DRUG EXPOSURE VIA FATHER

REACTIONS (2)
  - TRANSMISSION OF DRUG VIA SEMEN [None]
  - TRISOMY 21 [None]
